FAERS Safety Report 4639985-7 (Version None)
Quarter: 2005Q2

REPORT INFORMATION
  Report Type: 
  Country: None (occurrence: None)
  Receive Date: 20050420
  Receipt Date: 20050408
  Transmission Date: 20051028
  Serious: Yes (Hospitalization)
  Sender: FDA-Public Use
  Company Number: 200513117GDDC

PATIENT
  Age: 59 Year
  Sex: Female
  Weight: 85 kg

DRUGS (5)
  1. LANTUS [Suspect]
     Indication: DIABETES MELLITUS
     Route: 058
     Dates: start: 20050106
  2. ATENOLOL [Concomitant]
     Indication: HYPERTENSION
     Route: 048
     Dates: start: 20030101
  3. ASPIRIN [Concomitant]
     Route: 048
     Dates: start: 20020205
  4. ALPROX [Concomitant]
     Route: 048
     Dates: start: 20040901
  5. CLOPIDOGREL [Concomitant]

REACTIONS (5)
  - ACUTE CORONARY SYNDROME [None]
  - HYPOGLYCAEMIA [None]
  - MEDICATION ERROR [None]
  - PALPITATIONS [None]
  - TACHYCARDIA [None]
